FAERS Safety Report 18983194 (Version 2)
Quarter: 2021Q1

REPORT INFORMATION
  Report Type: Report from Study
  Country: US (occurrence: US)
  Receive Date: 20210308
  Receipt Date: 20210322
  Transmission Date: 20210420
  Serious: No
  Sender: FDA-Public Use
  Company Number: NVSC2021US045865

PATIENT
  Age: 45 Year
  Sex: Male

DRUGS (2)
  1. ENTRESTO [Suspect]
     Active Substance: SACUBITRIL\VALSARTAN
     Dosage: 200 MG, BID(97/103MG)
     Route: 048
  2. ENTRESTO [Suspect]
     Active Substance: SACUBITRIL\VALSARTAN
     Indication: PRODUCT USED FOR UNKNOWN INDICATION
     Dosage: 100 MG, BID(49/51MG)
     Route: 048

REACTIONS (4)
  - Hypertension [Unknown]
  - Asthenia [Recovered/Resolved]
  - Heart rate increased [Recovered/Resolved]
  - Fatigue [Recovered/Resolved]
